FAERS Safety Report 9798608 (Version 1)
Quarter: 2013Q4

REPORT INFORMATION
  Report Type: Spontaneous
  Country: DE (occurrence: None)
  Receive Date: 20131230
  Receipt Date: 20131230
  Transmission Date: 20140711
  Serious: Yes (Other)
  Sender: FDA-Public Use
  Company Number: KAD201312-001746

PATIENT
  Age: 51 Year
  Sex: Male

DRUGS (3)
  1. RIBAVIRIN (RIBAVIRIN) [Suspect]
     Indication: HEPATITIS C
     Dosage: 3 X 200 MG/DAY
  2. PEGYLATED INTERFERON (PEGYLATED INTERFERON) [Suspect]
     Indication: HEPATITIS C
     Dosage: ONCE A WEEK.
  3. TELAPREVIR (TELAPREVIR) [Suspect]
     Indication: HEPATITIS C
     Dosage: (3 CAPSULES OF 375 MG IN MORNING AND EVENING), 2 X 1.125 G/DAY

REACTIONS (4)
  - Anaemia [None]
  - Leukopenia [None]
  - Thrombocytopenia [None]
  - Renal impairment [None]
